FAERS Safety Report 4430065-2 (Version None)
Quarter: 2004Q3

REPORT INFORMATION
  Report Type: 
  Country: None (occurrence: None)
  Receive Date: 20040817
  Receipt Date: 20040809
  Transmission Date: 20050211
  Serious: Yes (Life-Threatening, Hospitalization)
  Sender: FDA-Public Use
  Company Number: 208260

PATIENT
  Age: 75 Year
  Sex: Female
  Weight: 99.8 kg

DRUGS (10)
  1. XOLAIR [Suspect]
     Indication: ASTHMA
     Dosage: 300 MG, 1/MONTH
     Dates: start: 20040506, end: 20040803
  2. ADVAIR DISKUS [Concomitant]
  3. SINGULAIR [Concomitant]
  4. ANTICHOLINGERGIC DRUGS NOS (ANTICHOLERGIC DRUGS NOS) [Concomitant]
  5. MEDROL [Concomitant]
  6. CELEBREX [Concomitant]
  7. DYAZIDE (HYDROCHLOROTHIAZIDE) [Concomitant]
  8. FORADIL [Concomitant]
  9. PULMONT (BUDESONIDE) [Concomitant]
  10. MEDROL [Concomitant]

REACTIONS (3)
  - ANAPHYLACTIC REACTION [None]
  - CHEST DISCOMFORT [None]
  - SEIZURE ANOXIC [None]
